FAERS Safety Report 9791212 (Version 4)
Quarter: 2014Q2

REPORT INFORMATION
  Report Type: Spontaneous
  Country: JP (occurrence: JP)
  Receive Date: 20131231
  Receipt Date: 20140415
  Transmission Date: 20141212
  Serious: Yes (Life-Threatening, Hospitalization)
  Sender: FDA-Public Use
  Company Number: JP-ROCHE-1326407

PATIENT
  Age: 79 Year
  Sex: Female
  Weight: 34 kg

DRUGS (9)
  1. PERJETA [Suspect]
     Indication: BREAST CANCER
     Dosage: FORM STRENGTH: 420 MG/ 14 ML
     Route: 041
     Dates: start: 20131021, end: 20131021
  2. HERCEPTIN [Suspect]
     Indication: BREAST CANCER
     Route: 041
     Dates: start: 20131021, end: 20131021
  3. DOCETAXEL [Concomitant]
     Indication: BREAST CANCER
     Dosage: DOSAGE IS UNCERTAIN.
     Route: 041
     Dates: start: 20131021, end: 20131021
  4. GRANISETRON [Concomitant]
     Indication: PROPHYLAXIS
     Route: 041
     Dates: start: 20131021, end: 20131021
  5. DEXART [Concomitant]
     Indication: PROPHYLAXIS
     Route: 041
     Dates: start: 20131021, end: 20131021
  6. GOSHAJINKIGAN [Concomitant]
     Indication: PROPHYLAXIS
     Route: 048
     Dates: start: 20131021, end: 20131023
  7. FAMOTIDINE D [Concomitant]
     Indication: PROPHYLAXIS
     Route: 048
     Dates: start: 20131011, end: 20131023
  8. REBAMIPIDE [Concomitant]
     Indication: PROPHYLAXIS
     Route: 048
     Dates: start: 20131011, end: 20131023
  9. SAWACILLIN [Concomitant]
     Indication: PROPHYLAXIS
     Route: 048
     Dates: start: 20131019, end: 20131023

REACTIONS (1)
  - Interstitial lung disease [Not Recovered/Not Resolved]
